FAERS Safety Report 16868366 (Version 1)
Quarter: 2019Q3

REPORT INFORMATION
  Report Type: Spontaneous
  Country: US (occurrence: US)
  Receive Date: 20190930
  Receipt Date: 20190930
  Transmission Date: 20191005
  Serious: No
  Sender: FDA-Public Use
  Company Number: US-PFIZER INC-2019415666

PATIENT
  Age: 30 Year
  Sex: Female
  Weight: 84.37 kg

DRUGS (2)
  1. ZOLOFT [Suspect]
     Active Substance: SERTRALINE HYDROCHLORIDE
     Indication: ANXIETY
     Dosage: 50 MG, 1X/DAY
     Dates: start: 201903, end: 2019
  2. ZOLOFT [Suspect]
     Active Substance: SERTRALINE HYDROCHLORIDE
     Indication: ANGER

REACTIONS (6)
  - Pain [Unknown]
  - Nausea [Not Recovered/Not Resolved]
  - Dysphemia [Not Recovered/Not Resolved]
  - Prescription drug used without a prescription [Unknown]
  - Dizziness [Unknown]
  - Vertigo [Not Recovered/Not Resolved]

NARRATIVE: CASE EVENT DATE: 2019
